FAERS Safety Report 13572405 (Version 1)
Quarter: 2017Q2

REPORT INFORMATION
  Report Type: Spontaneous
  Country: US (occurrence: US)
  Receive Date: 20170523
  Receipt Date: 20170523
  Transmission Date: 20170830
  Serious: No
  Sender: FDA-Public Use
  Company Number: US-JNJFOC-20170418648

PATIENT
  Age: 80 Year
  Sex: Male

DRUGS (13)
  1. ALLOPURINOL. [Concomitant]
     Active Substance: ALLOPURINOL
  2. GLYCINE. [Concomitant]
     Active Substance: GLYCINE
  3. SUPER B COMPLEX [Concomitant]
     Active Substance: CYANOCOBALAMIN\DEXPANTHENOL\NIACINAMIDE\PYRIDOXINE HYDROCHLORIDE\RIBOFLAVIN 5^-PHOSPHATE SODIUM\THIAMINE HYDROCHLORIDE\VITAMIN B COMPLEX
  4. VITAMIN D3 [Concomitant]
     Active Substance: CHOLECALCIFEROL
  5. OMEPRAZOLE. [Concomitant]
     Active Substance: OMEPRAZOLE
  6. OXYCODONE [Concomitant]
     Active Substance: OXYCODONE
  7. METAMUCIL [Concomitant]
     Active Substance: PLANTAGO SEED
  8. PREDNISONE. [Concomitant]
     Active Substance: PREDNISONE
  9. OSTEO BI-FLEX [Concomitant]
     Active Substance: CHONDROITIN SULFATE A\GLUCOSAMINE
  10. SELENIUM [Concomitant]
     Active Substance: SELENIUM
  11. POTASSIUM [Concomitant]
     Active Substance: POTASSIUM
  12. PROCHLORPERAZINE. [Concomitant]
     Active Substance: PROCHLORPERAZINE
  13. IMBRUVICA [Suspect]
     Active Substance: IBRUTINIB
     Indication: CHRONIC LYMPHOCYTIC LEUKAEMIA
     Route: 048
     Dates: start: 20141029, end: 201704

REACTIONS (2)
  - Incorrect dose administered [Recovered/Resolved]
  - Off label use [Recovered/Resolved]

NARRATIVE: CASE EVENT DATE: 20141029
